FAERS Safety Report 24391970 (Version 2)
Quarter: 2024Q4

REPORT INFORMATION
  Report Type: Report from Study
  Country: MX (occurrence: MX)
  Receive Date: 20241003
  Receipt Date: 20241015
  Transmission Date: 20250115
  Serious: Yes (Other)
  Sender: NOVARTIS
  Company Number: MX-002147023-NVSC2023MX163710

PATIENT
  Sex: Male
  Weight: 74 kg

DRUGS (5)
  1. ELTROMBOPAG OLAMINE [Suspect]
     Active Substance: ELTROMBOPAG OLAMINE
     Indication: Platelet count decreased
     Dosage: 1 DOSAGE FORM, QD ( 50 MG)
     Route: 048
     Dates: start: 20230626, end: 20230703
  2. ELTROMBOPAG OLAMINE [Suspect]
     Active Substance: ELTROMBOPAG OLAMINE
     Dosage: 2 DOSAGE FORM, QD
     Route: 065
     Dates: start: 20230703
  3. ELTROMBOPAG OLAMINE [Suspect]
     Active Substance: ELTROMBOPAG OLAMINE
     Dosage: 2 DOSAGE FORM, (50MG) QD
     Route: 048
     Dates: end: 202403
  4. AKINETON [Concomitant]
     Active Substance: BIPERIDEN HYDROCHLORIDE
     Indication: Dyskinesia
     Dosage: 1 DOSAGE FORM, QHS (1 TABLET AT NIGHT)
     Route: 048
     Dates: start: 202403
  5. RISPERDAL [Concomitant]
     Active Substance: RISPERIDONE
     Indication: Dyskinesia
     Dosage: 1.5 DOSAGE FORM, QD (TABLET)
     Route: 048
     Dates: start: 202403

REACTIONS (6)
  - Cerebral infarction [Recovered/Resolved]
  - Cerebral infarction [Recovered/Resolved]
  - Platelet count decreased [Recovered/Resolved]
  - Dyskinesia [Recovered/Resolved]
  - Movement disorder [Recovered/Resolved]
  - Off label use [Recovered/Resolved]

NARRATIVE: CASE EVENT DATE: 20230101
